FAERS Safety Report 8899259 (Version 1)
Quarter: 2012Q4

REPORT INFORMATION
  Report Type: 
  Country: US (occurrence: US)
  Receive Date: 20121108
  Receipt Date: 20121108
  Transmission Date: 20130627
  Serious: No
  Sender: FDA-Public Use
  Company Number: US-AMGEN-USASP2012032999

PATIENT
  Age: 54 Year
  Sex: Female

DRUGS (7)
  1. ENBREL [Suspect]
     Indication: PRODUCT USED FOR UNKNOWN INDICATION
     Dosage: 50 mg, qwk
     Route: 058
  2. SINGULAIR [Concomitant]
     Dosage: 10 mg, UNK
  3. FOLIC ACID [Concomitant]
     Dosage: 1 mg, UNK
  4. HYDROCHLOROTH [Concomitant]
     Dosage: 12.5 mg, UNK
  5. ALBUTEROL                          /00139501/ [Concomitant]
     Dosage: 0.083 %, UNK
  6. VITAMIN D3 [Concomitant]
     Dosage: UNK
  7. PULMICORT [Concomitant]
     Dosage: 200 mug, UNK

REACTIONS (4)
  - Asthma [Unknown]
  - Influenza [Unknown]
  - Pneumonia [Unknown]
  - Nasopharyngitis [Unknown]
